FAERS Safety Report 8804375 (Version 1)
Quarter: 2012Q4

REPORT INFORMATION
  Report Type: 
  Country: US (occurrence: US)
  Receive Date: 20120923
  Receipt Date: 20120923
  Transmission Date: 20130627
  Serious: No
  Sender: FDA-Public Use
  Company Number: 2006BI006763

PATIENT
  Age: 42 Year
  Sex: Female
  Weight: 58 kg

DRUGS (6)
  1. AVONEX [Suspect]
     Indication: MULTIPLE SCLEROSIS
     Route: 030
     Dates: start: 20060304, end: 20060311
  2. AVONEX [Suspect]
     Indication: MULTIPLE SCLEROSIS
     Route: 030
     Dates: start: 20060318, end: 20060325
  3. AVONEX [Suspect]
     Indication: MULTIPLE SCLEROSIS
     Route: 030
     Dates: start: 20060401, end: 20060408
  4. AVONEX [Suspect]
     Indication: MULTIPLE SCLEROSIS
     Route: 030
     Dates: start: 20060415, end: 20060415
  5. AVONEX [Suspect]
     Indication: MULTIPLE SCLEROSIS
     Route: 030
     Dates: start: 20060423
  6. ADVIL [Concomitant]
     Indication: PREMEDICATION

REACTIONS (6)
  - Injection site haemorrhage [Recovered/Resolved]
  - Contusion [Not Recovered/Not Resolved]
  - Influenza like illness [Recovered/Resolved]
  - Middle insomnia [Recovered/Resolved]
  - Injection site pain [Recovered/Resolved]
  - Injection site bruising [Recovered/Resolved]
